FAERS Safety Report 9161508 (Version 2)
Quarter: 2013Q2

REPORT INFORMATION
  Report Type: Spontaneous
  Country: US (occurrence: US)
  Receive Date: 20130313
  Receipt Date: 20130409
  Transmission Date: 20140414
  Serious: No
  Sender: FDA-Public Use
  Company Number: US-PFIZER INC-2013081912

PATIENT
  Age: 45 Year
  Sex: Male
  Weight: 74.84 kg

DRUGS (7)
  1. MOTRIN IB [Suspect]
     Indication: CROHN^S DISEASE
     Dosage: 800 MG, 1X/DAY
     Route: 048
  2. TOPAMAX [Concomitant]
     Indication: CROHN^S DISEASE
     Dosage: UNK
     Route: 065
  3. LANSOPRAZOLE [Concomitant]
     Indication: CROHN^S DISEASE
     Dosage: UNK
     Route: 065
  4. VANCOMYCIN [Concomitant]
     Indication: CROHN^S DISEASE
     Dosage: UNK
     Route: 065
  5. STOOL SOFTENER [Concomitant]
     Indication: CROHN^S DISEASE
     Dosage: UNK
     Route: 065
  6. ALIGN NOS [Concomitant]
     Indication: CROHN^S DISEASE
     Dosage: UNK
     Route: 065
  7. BALSALAZIDE SODIUM [Concomitant]
     Indication: CROHN^S DISEASE
     Dosage: UNK
     Route: 065

REACTIONS (4)
  - Incorrect dose administered [Recovered/Resolved]
  - Nausea [Recovered/Resolved]
  - Vomiting [Recovered/Resolved]
  - Diarrhoea [Recovered/Resolved]
